FAERS Safety Report 9363912 (Version 1)
Quarter: 2013Q2

REPORT INFORMATION
  Report Type: Spontaneous
  Country: US (occurrence: US)
  Receive Date: 20130624
  Receipt Date: 20130624
  Transmission Date: 20140414
  Serious: Yes (Other)
  Sender: FDA-Public Use
  Company Number: US-PFIZER INC-2013184386

PATIENT
  Age: 55 Year
  Sex: Male
  Weight: 95.24 kg

DRUGS (5)
  1. VIAGRA [Suspect]
     Indication: ERECTILE DYSFUNCTION
     Dosage: 100 MG, AS NEEDED
     Route: 048
  2. KEPPRA [Concomitant]
     Indication: CONVULSION
     Dosage: UNK
  3. PLAVIX [Concomitant]
     Dosage: UNK
  4. METANX [Concomitant]
     Dosage: UNK
  5. LIPITOR [Concomitant]
     Dosage: UNK

REACTIONS (1)
  - Angiopathy [Unknown]
